FAERS Safety Report 15114094 (Version 1)
Quarter: 2018Q3

REPORT INFORMATION
  Report Type: Spontaneous
  Country: NO (occurrence: NO)
  Receive Date: 20180706
  Receipt Date: 20180706
  Transmission Date: 20181010
  Serious: Yes (Death, Hospitalization)
  Sender: FDA-Public Use
  Company Number: NO-VELOXIS PHARMACEUTICALS, INC.-2018VELNO1019

PATIENT

DRUGS (8)
  1. METHOTREXATE. [Concomitant]
     Active Substance: METHOTREXATE
     Indication: IMMUNOSUPPRESSANT DRUG THERAPY
  2. ENVARSUS XR [Suspect]
     Active Substance: TACROLIMUS
     Indication: PROPHYLAXIS AGAINST GRAFT VERSUS HOST DISEASE
     Route: 065
  3. CYCLOPHOSPHAMIDE. [Concomitant]
     Active Substance: CYCLOPHOSPHAMIDE
     Indication: IMMUNE TOLERANCE INDUCTION
     Dosage: DAYS ?6 AND ?5
     Route: 065
  4. MYCOPHENOLATE MOFETIL. [Concomitant]
     Active Substance: MYCOPHENOLATE MOFETIL
     Indication: PROPHYLAXIS AGAINST GRAFT VERSUS HOST DISEASE
     Route: 065
  5. CYCLOPHOSPHAMIDE. [Concomitant]
     Active Substance: CYCLOPHOSPHAMIDE
     Indication: STEM CELL TRANSPLANT
     Dosage: DAYS +3 AND +4
     Route: 065
  6. AZATHIOPRINE. [Concomitant]
     Active Substance: AZATHIOPRINE
     Indication: IMMUNOSUPPRESSANT DRUG THERAPY
  7. FLUDARABINE [Concomitant]
     Active Substance: FLUDARABINE PHOSPHATE
     Indication: IMMUNE TOLERANCE INDUCTION
     Dosage: 30 MG/M2, DAY ?6 TO ?2
  8. BUSULFAN. [Concomitant]
     Active Substance: BUSULFAN
     Indication: IMMUNE TOLERANCE INDUCTION
     Dosage: 3.2 MG/KG, QD, AT DAYS ?4 AND ?3
     Route: 065

REACTIONS (6)
  - Pneumocystis jirovecii pneumonia [Fatal]
  - Candida infection [Fatal]
  - Herpes simplex test positive [Fatal]
  - Cytomegalovirus infection [Fatal]
  - Intentional product use issue [Unknown]
  - Staphylococcal infection [Fatal]
